FAERS Safety Report 16934918 (Version 1)
Quarter: 2019Q4

REPORT INFORMATION
  Report Type: Spontaneous
  Country: FR (occurrence: FR)
  Receive Date: 20191018
  Receipt Date: 20191018
  Transmission Date: 20200122
  Serious: Yes (Other)
  Sender: FDA-Public Use
  Company Number: FR-JNJFOC-20191009220

PATIENT
  Age: 50 Year
  Sex: Female

DRUGS (3)
  1. STELARA [Suspect]
     Active Substance: USTEKINUMAB
     Indication: CROHN^S DISEASE
     Route: 058
     Dates: start: 2017
  2. STELARA [Suspect]
     Active Substance: USTEKINUMAB
     Route: 042
     Dates: start: 201802
  3. STELARA [Suspect]
     Active Substance: USTEKINUMAB
     Route: 058

REACTIONS (2)
  - Hypotension [Unknown]
  - Basedow^s disease [Unknown]

NARRATIVE: CASE EVENT DATE: 201803
